FAERS Safety Report 6396129-1 (Version None)
Quarter: 2009Q4

REPORT INFORMATION
  Report Type: 
  Country: None (occurrence: None)
  Receive Date: 20091009
  Receipt Date: 20090930
  Transmission Date: 20100525
  Serious: Yes (Other)
  Sender: FDA-Public Use
  Company Number: BR-MERCK-0910BRA00008

PATIENT

DRUGS (1)
  1. RALTEGRAVIR POTASSIUM [Suspect]
     Indication: HIV INFECTION
     Route: 048
     Dates: end: 20090901

REACTIONS (1)
  - STEVENS-JOHNSON SYNDROME [None]
